FAERS Safety Report 12980849 (Version 2)
Quarter: 2016Q4

REPORT INFORMATION
  Report Type: Spontaneous
  Country: JP (occurrence: JP)
  Receive Date: 20161128
  Receipt Date: 20161214
  Transmission Date: 20170207
  Serious: Yes (Hospitalization)
  Sender: FDA-Public Use
  Company Number: JP-NAPPMUNDI-GBR-2016-0041894

PATIENT
  Sex: Male

DRUGS (1)
  1. NORSPAN [Suspect]
     Active Substance: BUPRENORPHINE
     Indication: SPINAL COLUMN STENOSIS
     Dosage: 5 MCG, Q1H
     Route: 062
     Dates: start: 201609, end: 20161121

REACTIONS (1)
  - Metastases to pleura [Not Recovered/Not Resolved]

NARRATIVE: CASE EVENT DATE: 201611
